FAERS Safety Report 16859996 (Version 2)
Quarter: 2019Q4

REPORT INFORMATION
  Report Type: Spontaneous
  Country: US (occurrence: US)
  Receive Date: 20190927
  Receipt Date: 20191004
  Transmission Date: 20200122
  Serious: No
  Sender: FDA-Public Use
  Company Number: US-HORIZON-PRO-0205-2019

PATIENT
  Age: 1 Year
  Sex: Male

DRUGS (7)
  1. POLY-CITRA K [Concomitant]
  2. ZOFRAN [Concomitant]
     Active Substance: ONDANSETRON HYDROCHLORIDE
     Dosage: AS NEEDED
  3. PROCYSBI [Suspect]
     Active Substance: CYSTEAMINE BITARTRATE
     Indication: CYSTINOSIS
     Dosage: 100MG IN THE MORNING AND 100MG IN THE EVENING VIA G-TUBE
     Dates: start: 201903
  4. CARNITINE [Concomitant]
     Active Substance: CARNITINE
  5. IRON SUPPLEMENTS [Concomitant]
     Active Substance: IRON
  6. INDOCIN [Concomitant]
     Active Substance: INDOMETHACIN
  7. NEUTRA-PHOS [Concomitant]
     Active Substance: POTASSIUM PHOSPHATE, DIBASIC\POTASSIUM PHOSPHATE, MONOBASIC\SODIUM PHOSPHATE, DIBASIC\SODIUM PHOSPHATE, MONOBASIC

REACTIONS (4)
  - Incorrect dose administered [Recovered/Resolved]
  - Vomiting [Recovered/Resolved]
  - Product communication issue [Recovered/Resolved]
  - No adverse event [Recovered/Resolved]
